FAERS Safety Report 7270094-7 (Version None)
Quarter: 2011Q1

REPORT INFORMATION
  Report Type: 
  Country: None (occurrence: None)
  Receive Date: 20110125
  Receipt Date: 20110125
  Transmission Date: 20110831
  Serious: No
  Sender: FDA-Public Use
  Company Number: None

PATIENT
  Age: 33 Year
  Sex: Female
  Weight: 71.6683 kg

DRUGS (2)
  1. LEVOFLOXACIN [Suspect]
     Indication: PNEUMONIA
     Dosage: 750 MG ONCE PER DAY PO
     Route: 048
     Dates: start: 20110110, end: 20110120
  2. MILK OF MAGNESIA TAB [Concomitant]

REACTIONS (8)
  - FATIGUE [None]
  - ASTHENIA [None]
  - DIZZINESS [None]
  - HUNGER [None]
  - THIRST [None]
  - PALPITATIONS [None]
  - NAUSEA [None]
  - IMPAIRED WORK ABILITY [None]
